FAERS Safety Report 10906822 (Version 1)
Quarter: 2015Q1

REPORT INFORMATION
  Report Type: Spontaneous
  Country: US (occurrence: None)
  Receive Date: 20150309
  Receipt Date: 20150309
  Transmission Date: 20150721
  Serious: Yes (Disabling)
  Sender: FDA-Public Use
  Company Number: None

PATIENT
  Age: 50 Year
  Sex: Male
  Weight: 99.79 kg

DRUGS (5)
  1. ZOLOFT [Concomitant]
     Active Substance: SERTRALINE HYDROCHLORIDE
  2. VALIUM [Concomitant]
     Active Substance: DIAZEPAM
  3. PROPRANOLOL [Concomitant]
     Active Substance: PROPRANOLOL\PROPRANOLOL HYDROCHLORIDE
  4. VITAMIN B12 [Concomitant]
     Active Substance: CYANOCOBALAMIN
  5. LEVOFLOXACIN. [Suspect]
     Active Substance: LEVOFLOXACIN
     Indication: SINUSITIS
     Dosage: 1 PILL ONCE DAILY
     Route: 048
     Dates: start: 20140721, end: 20140729

REACTIONS (12)
  - Faeces discoloured [None]
  - Gait disturbance [None]
  - Photophobia [None]
  - Loss of employment [None]
  - Dizziness [None]
  - Arthralgia [None]
  - Headache [None]
  - Anosmia [None]
  - Thinking abnormal [None]
  - Diarrhoea [None]
  - Walking aid user [None]
  - Hyperacusis [None]

NARRATIVE: CASE EVENT DATE: 20140721
